FAERS Safety Report 9548323 (Version 1)
Quarter: 2013Q3

REPORT INFORMATION
  Report Type: Spontaneous
  Country: US (occurrence: None)
  Receive Date: 20130705
  Receipt Date: 20130705
  Transmission Date: 20140515
  Serious: Yes (Hospitalization, Other)
  Sender: FDA-Public Use
  Company Number: RB-53682-2013

PATIENT
  Sex: Female

DRUGS (2)
  1. SUBOXONE 8 MG [Suspect]
     Indication: PRODUCT USED FOR UNKNOWN INDICATION
     Dosage: (32 MG, SUBOXONE FILM, TAKE MORE THAN PRESCRIBED  (TOTALING 32MG IN 1 DAY) UNKNOWN)
  2. ALCOHOL [Suspect]
     Indication: PRODUCT USED FOR UNKNOWN INDICATION
     Dosage: (UNKNOWN DOSING DETAILS ORAL)

REACTIONS (3)
  - Road traffic accident [None]
  - Overdose [None]
  - Alcohol abuse [None]
